FAERS Safety Report 5359309-X (Version None)
Quarter: 2007Q2

REPORT INFORMATION
  Report Type: 
  Country: None (occurrence: None)
  Receive Date: 20070615
  Receipt Date: 20070604
  Transmission Date: 20071010
  Serious: Yes (Other)
  Sender: FDA-Public Use
  Company Number: JP-PFIZER INC-2007034187

PATIENT
  Sex: Female

DRUGS (3)
  1. CABASER [Suspect]
     Indication: PROLACTINOMA
     Route: 048
     Dates: start: 20070302, end: 20070417
  2. LOXONIN [Concomitant]
     Indication: HEADACHE
     Route: 048
     Dates: start: 20050101, end: 20070428
  3. SELBEX [Concomitant]
     Route: 048
     Dates: start: 20050101, end: 20070428

REACTIONS (1)
  - TOXIC SKIN ERUPTION [None]
